FAERS Safety Report 11685316 (Version 1)
Quarter: 2015Q4

REPORT INFORMATION
  Report Type: Spontaneous
  Country: US (occurrence: None)
  Receive Date: 20151029
  Receipt Date: 20151029
  Transmission Date: 20160304
  Serious: No
  Sender: FDA-Public Use
  Company Number: None

PATIENT
  Age: 51 Year
  Sex: Female
  Weight: 72.58 kg

DRUGS (5)
  1. LIALDA [Concomitant]
     Active Substance: MESALAMINE
  2. NORETHINDRONE NORETHINDRONE [Suspect]
     Active Substance: NORETHINDRONE
     Indication: MENORRHAGIA
     Route: 048
     Dates: start: 20151008, end: 20151028
  3. NORETHINDRONE NORETHINDRONE [Suspect]
     Active Substance: NORETHINDRONE
     Indication: ENDOMETRIOSIS
     Route: 048
     Dates: start: 20151008, end: 20151028
  4. IRON [Concomitant]
     Active Substance: IRON
  5. MULTIVITAMIN [Concomitant]
     Active Substance: VITAMINS

REACTIONS (1)
  - Dysgeusia [None]

NARRATIVE: CASE EVENT DATE: 20151028
